FAERS Safety Report 8100309-4 (Version None)
Quarter: 2012Q1

REPORT INFORMATION
  Report Type: 
  Country: None (occurrence: None)
  Receive Date: 20120129
  Receipt Date: 20111128
  Transmission Date: 20120608
  Serious: Yes (Other)
  Sender: FDA-Public Use
  Company Number: US-ABBOTT-11P-163-0877622-00

PATIENT
  Sex: Female
  Weight: 77.18 kg

DRUGS (2)
  1. HUMIRA [Suspect]
     Dates: start: 20110701
  2. HUMIRA [Suspect]
     Indication: GUTTATE PSORIASIS
     Dates: start: 20060101, end: 20110401

REACTIONS (2)
  - ARTHRALGIA [None]
  - GUTTATE PSORIASIS [None]
